FAERS Safety Report 6842747-3 (Version None)
Quarter: 2010Q3

REPORT INFORMATION
  Report Type: 
  Country: None (occurrence: None)
  Receive Date: 20100714
  Receipt Date: 20071003
  Transmission Date: 20110219
  Serious: No
  Sender: FDA-Public Use
  Company Number: US-PFIZER INC-2007065273

PATIENT
  Sex: Female
  Weight: 90.7 kg

DRUGS (4)
  1. CHANTIX [Suspect]
     Indication: SMOKING CESSATION THERAPY
     Dates: start: 20070721
  2. NORVASC [Concomitant]
     Indication: HYPERTENSION
  3. HYDROCHLOROTHIAZIDE [Concomitant]
     Indication: HYPERTENSION
  4. VALSARTAN [Concomitant]
     Indication: HYPERTENSION

REACTIONS (5)
  - ARTHROPOD BITE [None]
  - HEADACHE [None]
  - NAUSEA [None]
  - PRURITUS [None]
  - SKIN LESION [None]
